FAERS Safety Report 20817397 (Version 1)
Quarter: 2022Q2

REPORT INFORMATION
  Report Type: Spontaneous
  Country: US (occurrence: None)
  Receive Date: 20220512
  Receipt Date: 20220512
  Transmission Date: 20220721
  Serious: Yes (Death, Hospitalization, Other)
  Sender: FDA-Public Use
  Company Number: US-Hikma Pharmaceuticals USA Inc.-US-H14001-22-01161

PATIENT
  Age: 41 Year
  Sex: Male
  Weight: 90.7 kg

DRUGS (4)
  1. METHAMPHETAMINE [Suspect]
     Active Substance: METHAMPHETAMINE
     Indication: Product used for unknown indication
     Dosage: UNKNOWN
     Route: 065
  2. REMODULIN [Suspect]
     Active Substance: TREPROSTINIL
     Indication: Pulmonary arterial hypertension
     Dosage: UNKNOWN
     Route: 058
     Dates: start: 20200515
  3. REMODULIN [Suspect]
     Active Substance: TREPROSTINIL
     Route: 058
  4. ADEMPAS [Concomitant]
     Active Substance: RIOCIGUAT
     Indication: Product used for unknown indication
     Dosage: UNKNOWN
     Route: 065

REACTIONS (12)
  - Death [Fatal]
  - Respiratory distress [Unknown]
  - Dyspnoea [Unknown]
  - Overdose [Unknown]
  - Drug abuse [Unknown]
  - Drug withdrawal syndrome [Unknown]
  - Restlessness [Unknown]
  - Generalised oedema [Unknown]
  - Weight increased [Unknown]
  - Erythema [Unknown]
  - Gait disturbance [Unknown]
  - Hypotension [Unknown]

NARRATIVE: CASE EVENT DATE: 20220402
